FAERS Safety Report 9861693 (Version 1)
Quarter: 2014Q1

REPORT INFORMATION
  Report Type: Spontaneous
  Country: US (occurrence: None)
  Receive Date: 20140130
  Receipt Date: 20140130
  Transmission Date: 20141002
  Serious: Yes (Other)
  Sender: FDA-Public Use
  Company Number: 2010S1000481

PATIENT
  Age: 33 Year
  Sex: Female
  Weight: 93.44 kg

DRUGS (5)
  1. FLEET PHOSPHO-SODA [Suspect]
     Indication: PREOPERATIVE CARE
     Route: 048
     Dates: start: 20071003, end: 20071003
  2. DIOVAN (VALSARTAN) [Concomitant]
  3. REGLAN (METOCLOPRAMIDE) [Concomitant]
  4. FAMOTIDINE (FAMOTIDINE) [Suspect]
  5. IBUPROFEN (IBUPROFEN) [Concomitant]

REACTIONS (7)
  - Gastrooesophageal reflux disease [None]
  - Proctalgia [None]
  - Muscle spasms [None]
  - Change of bowel habit [None]
  - Rectal haemorrhage [None]
  - Weight decreased [None]
  - Renal failure [None]
